FAERS Safety Report 21937113 (Version 1)
Quarter: 2023Q1

REPORT INFORMATION
  Report Type: Spontaneous
  Country: US (occurrence: None)
  Receive Date: 20230131
  Receipt Date: 20230131
  Transmission Date: 20230417
  Serious: Yes (Other)
  Sender: FDA-Public Use
  Company Number: None

PATIENT
  Age: 47 Year
  Sex: Female
  Weight: 73.94 kg

DRUGS (1)
  1. REPATHA [Suspect]
     Active Substance: EVOLOCUMAB
     Indication: Hyperlipidaemia
     Dates: start: 20220329, end: 20221124

REACTIONS (3)
  - Pain [None]
  - Fatigue [None]
  - Skin disorder [None]

NARRATIVE: CASE EVENT DATE: 20221125
